FAERS Safety Report 23939104 (Version 1)
Quarter: 2024Q2

REPORT INFORMATION
  Report Type: Spontaneous
  Country: ES (occurrence: ES)
  Receive Date: 20240604
  Receipt Date: 20240604
  Transmission Date: 20240716
  Serious: Yes (Life-Threatening)
  Sender: FDA-Public Use
  Company Number: None

PATIENT
  Age: 46 Year
  Sex: Male

DRUGS (5)
  1. STELARA [Suspect]
     Active Substance: USTEKINUMAB
     Indication: Psoriasis
     Dosage: 1.0 JER PREC C/3 MESES
     Route: 058
     Dates: start: 20120108, end: 20240313
  2. STELARA [Suspect]
     Active Substance: USTEKINUMAB
  3. CELEBREX [Concomitant]
     Active Substance: CELECOXIB
     Indication: Musculoskeletal pain
     Dosage: 200.0 MG DE
     Route: 048
     Dates: start: 20240427, end: 20240511
  4. ZALDIAR [Concomitant]
     Active Substance: ACETAMINOPHEN\TRAMADOL HYDROCHLORIDE
     Indication: Abdominal pain
     Dosage: 1.0 COMP C/12 H
     Route: 048
     Dates: start: 20240423
  5. IBUPROFEN [Concomitant]
     Active Substance: IBUPROFEN
     Indication: Abdominal pain
     Dosage: 600.0 MG DECE
     Route: 048
     Dates: start: 20240412

REACTIONS (1)
  - Adenocarcinoma gastric [Unknown]

NARRATIVE: CASE EVENT DATE: 20240505
